FAERS Safety Report 7822036-0 (Version None)
Quarter: 2011Q4

REPORT INFORMATION
  Report Type: 
  Country: None (occurrence: None)
  Receive Date: 20111018
  Receipt Date: 20111005
  Transmission Date: 20120403
  Serious: Yes (Other)
  Sender: FDA-Public Use
  Company Number: PHHY2011BR88536

PATIENT
  Sex: Female

DRUGS (1)
  1. DIOVAN [Suspect]
     Dosage: 3 DF(160 MG), DAILY

REACTIONS (5)
  - ASTHMA [None]
  - BLOOD PRESSURE INCREASED [None]
  - DYSPNOEA [None]
  - RHINITIS ALLERGIC [None]
  - DRUG INEFFECTIVE [None]
